FAERS Safety Report 7962604-9 (Version None)
Quarter: 2011Q4

REPORT INFORMATION
  Report Type: 
  Country: None (occurrence: None)
  Receive Date: 20111207
  Receipt Date: 20111205
  Transmission Date: 20120403
  Serious: No
  Sender: FDA-Public Use
  Company Number: US-TEVA-312216USA

PATIENT
  Sex: Male

DRUGS (1)
  1. AZILECT [Suspect]
     Indication: PARKINSON'S DISEASE
     Dosage: .5 MILLIGRAM;
     Route: 048
     Dates: start: 20111202

REACTIONS (4)
  - FEELING ABNORMAL [None]
  - HEADACHE [None]
  - INFLUENZA LIKE ILLNESS [None]
  - OROPHARYNGEAL PAIN [None]
